FAERS Safety Report 20306633 (Version 9)
Quarter: 2022Q3

REPORT INFORMATION
  Report Type: Report from Study
  Country: IT (occurrence: IT)
  Receive Date: 20220106
  Receipt Date: 20220726
  Transmission Date: 20221027
  Serious: Yes (Hospitalization, Other)
  Sender: FDA-Public Use
  Company Number: IT-BRISTOL-MYERS SQUIBB COMPANY-BMS-2021-143412

PATIENT
  Age: 5 Year
  Sex: Female
  Weight: 24 kg

DRUGS (3)
  1. ACETAMINOPHEN [Concomitant]
     Active Substance: ACETAMINOPHEN
     Indication: Prophylaxis
     Dosage: BD; TWICE PER DAY?ONGOING
     Route: 048
     Dates: start: 20211203
  2. LEVETIRACETAM [Concomitant]
     Active Substance: LEVETIRACETAM
     Indication: Prophylaxis
     Dosage: EVERY 12 HOURS?ONGOING
     Route: 048
     Dates: start: 20200623
  3. OXATOMIDE [Concomitant]
     Active Substance: OXATOMIDE
     Indication: Rash
     Dosage: 1 DF= 12 UNITS NOS?AS NEEDED
     Route: 048
     Dates: start: 20211216, end: 20211222

REACTIONS (1)
  - Nephrotic syndrome [Not Recovered/Not Resolved]

NARRATIVE: CASE EVENT DATE: 20211223
